FAERS Safety Report 8541525-7 (Version None)
Quarter: 2012Q3

REPORT INFORMATION
  Report Type: 
  Country: None (occurrence: None)
  Receive Date: 20120726
  Receipt Date: 20120719
  Transmission Date: 20120928
  Serious: Yes (Death, Hospitalization)
  Sender: FDA-Public Use
  Company Number: JP-BAYER-2011-028285

PATIENT
  Age: 86 Year
  Sex: Male
  Weight: 42 kg

DRUGS (6)
  1. LASIX [Concomitant]
     Dosage: DAILY DOSE 20 MG
     Route: 048
     Dates: end: 20101030
  2. NEXAVAR [Suspect]
     Indication: HEPATIC NEOPLASM MALIGNANT
     Dosage: 200 MG, QD
     Route: 048
     Dates: start: 20101019, end: 20101025
  3. TAURINE [Concomitant]
     Dosage: DAILY DOSE 3 G
     Route: 048
     Dates: end: 20101030
  4. FAMOTIDINE [Concomitant]
     Dosage: DAILY DOSE 20 MG
     Route: 048
     Dates: end: 20101030
  5. URSO 250 [Concomitant]
     Dosage: DAILY DOSE 600 MG
     Route: 048
     Dates: end: 20101030
  6. ALDACTONE [Concomitant]
     Dosage: DAILY DOSE 25 MG
     Route: 048
     Dates: end: 20101030

REACTIONS (3)
  - HEPATIC NEOPLASM MALIGNANT [None]
  - LIVER DISORDER [None]
  - NEOPLASM PROGRESSION [None]
